FAERS Safety Report 24859195 (Version 1)
Quarter: 2025Q1

REPORT INFORMATION
  Report Type: Report from Study
  Country: IT (occurrence: IT)
  Receive Date: 20250118
  Receipt Date: 20250118
  Transmission Date: 20250408
  Serious: No
  Sender: SANDOZ
  Company Number: IT-SANDOZ-SDZ2025IT002090

PATIENT
  Age: 56 Year
  Sex: Female
  Weight: 70 kg

DRUGS (1)
  1. SOMATROPIN [Suspect]
     Active Substance: SOMATROPIN
     Indication: Growth hormone deficiency
     Dosage: 0.8 MG, QD
     Route: 058

REACTIONS (4)
  - Drug dose omission by device [Unknown]
  - Device occlusion [Unknown]
  - Device issue [Unknown]
  - Expired device used [Unknown]

NARRATIVE: CASE EVENT DATE: 20250101
